FAERS Safety Report 10416492 (Version 2)
Quarter: 2014Q3

REPORT INFORMATION
  Report Type: Spontaneous
  Country: US (occurrence: US)
  Receive Date: 20140828
  Receipt Date: 20140924
  Transmission Date: 20150326
  Serious: Yes (Other)
  Sender: FDA-Public Use
  Company Number: US-GLAXOSMITHKLINE-A1085710A

PATIENT
  Age: 79 Year
  Sex: Male

DRUGS (2)
  1. SINGULAIR [Concomitant]
     Active Substance: MONTELUKAST SODIUM
  2. ADVAIR HFA [Suspect]
     Active Substance: FLUTICASONE PROPIONATE\SALMETEROL XINAFOATE
     Indication: ASTHMA
     Dosage: 2PUFF IN THE MORNING
     Route: 055
     Dates: start: 2004

REACTIONS (7)
  - Drug ineffective [Unknown]
  - Product quality issue [Unknown]
  - Expired product administered [Recovered/Resolved]
  - Cerebrovascular accident [Unknown]
  - Incorrect dosage administered [Unknown]
  - Dyspnoea [Unknown]
  - Expired device used [Recovered/Resolved]
